FAERS Safety Report 10201370 (Version 1)
Quarter: 2014Q2

REPORT INFORMATION
  Report Type: Spontaneous
  Country: NZ (occurrence: NZ)
  Receive Date: 20140528
  Receipt Date: 20140528
  Transmission Date: 20141212
  Serious: Yes (Other)
  Sender: FDA-Public Use
  Company Number: NZ-PFIZER INC-2014139593

PATIENT
  Sex: Male

DRUGS (1)
  1. ZARATOR [Suspect]
     Dosage: UNK

REACTIONS (3)
  - Renal impairment [Unknown]
  - Myalgia [Unknown]
  - Gait disturbance [Unknown]
